FAERS Safety Report 21974335 (Version 1)
Quarter: 2023Q1

REPORT INFORMATION
  Report Type: Spontaneous
  Country: US (occurrence: US)
  Receive Date: 20230209
  Receipt Date: 20230209
  Transmission Date: 20230418
  Serious: No
  Sender: FDA-Public Use
  Company Number: US-MYLANLABS-2023M1011814

PATIENT
  Sex: Male
  Weight: 132.44 kg

DRUGS (1)
  1. SEMGLEE (INSULIN GLARGINE-YFGN) [Suspect]
     Active Substance: INSULIN GLARGINE-YFGN
     Indication: Diabetes mellitus
     Dosage: 10 MILLIGRAM, HS
     Route: 058

REACTIONS (3)
  - Device breakage [Unknown]
  - Wrong technique in product usage process [Unknown]
  - Product quality issue [Unknown]
